FAERS Safety Report 6891959-1 (Version None)
Quarter: 2010Q3

REPORT INFORMATION
  Report Type: 
  Country: None (occurrence: None)
  Receive Date: 20100731
  Receipt Date: 20071205
  Transmission Date: 20110219
  Serious: No
  Sender: FDA-Public Use
  Company Number: US-PFIZER INC-2007091203

PATIENT
  Age: 63 Year
  Sex: Male
  Weight: 86.18 kg

DRUGS (7)
  1. DEPO-MEDROL [Suspect]
     Indication: HYPERSENSITIVITY
     Route: 042
     Dates: start: 20071027
  2. DEPO-MEDROL [Suspect]
     Indication: DYSPHAGIA
  3. GLUCOPHAGE [Concomitant]
  4. ATORVASTATIN [Concomitant]
  5. ACETYLSALICYLIC ACID SRT [Concomitant]
  6. NEXIUM [Concomitant]
  7. DECONGESTANT [Concomitant]

REACTIONS (2)
  - INCORRECT ROUTE OF DRUG ADMINISTRATION [None]
  - NO ADVERSE EVENT [None]
